FAERS Safety Report 5852208-6 (Version None)
Quarter: 2008Q3

REPORT INFORMATION
  Report Type: 
  Country: None (occurrence: None)
  Receive Date: 20080820
  Receipt Date: 20080820
  Transmission Date: 20090109
  Serious: No
  Sender: FDA-Public Use
  Company Number: None

PATIENT

DRUGS (1)
  1. HURRICAINE [Suspect]
     Dosage: SPRAY

REACTIONS (3)
  - MEDICATION ERROR [None]
  - METHAEMOGLOBINAEMIA [None]
  - OVERDOSE [None]
